FAERS Safety Report 26108812 (Version 1)
Quarter: 2025Q4

REPORT INFORMATION
  Report Type: Spontaneous
  Country: US (occurrence: US)
  Receive Date: 20251201
  Receipt Date: 20251201
  Transmission Date: 20260117
  Serious: No
  Sender: EISAI
  Company Number: US-Eisai-EC-2025-199717

PATIENT
  Age: 69 Year
  Sex: Female

DRUGS (12)
  1. LEQEMBI [Suspect]
     Active Substance: LECANEMAB-IRMB
     Indication: Product used for unknown indication
     Dosage: DOSE UNKNOWN
     Route: 042
     Dates: start: 20251013, end: 20251013
  2. LEQEMBI [Suspect]
     Active Substance: LECANEMAB-IRMB
     Dosage: DOSE UNKNOWN (2ND INFUSION)
     Route: 042
     Dates: start: 20251027, end: 20251027
  3. DONEPEZIL [Concomitant]
     Active Substance: DONEPEZIL
  4. MEMANTINE [Concomitant]
     Active Substance: MEMANTINE
  5. TRAZODONE [Concomitant]
     Active Substance: TRAZODONE HYDROCHLORIDE
  6. DULOXETINE [Concomitant]
     Active Substance: DULOXETINE
  7. GABAPENTIN [Concomitant]
     Active Substance: GABAPENTIN
  8. MIDODRINE [Concomitant]
     Active Substance: MIDODRINE
  9. SODIUM SULFATE [Concomitant]
     Active Substance: SODIUM SULFATE
  10. ACYCLOVIR [Concomitant]
     Active Substance: ACYCLOVIR
  11. LEVOTHYROXINE [Concomitant]
     Active Substance: LEVOTHYROXINE
  12. IRON [Concomitant]
     Active Substance: IRON

REACTIONS (2)
  - Amyloid related imaging abnormality-oedema/effusion [Unknown]
  - Amyloid related imaging abnormality-microhaemorrhages and haemosiderin deposits [Unknown]

NARRATIVE: CASE EVENT DATE: 20250101
